FAERS Safety Report 13036806 (Version 1)
Quarter: 2016Q4

REPORT INFORMATION
  Report Type: Spontaneous
  Country: US (occurrence: US)
  Receive Date: 20161216
  Receipt Date: 20161216
  Transmission Date: 20170207
  Serious: Yes (Death)
  Sender: FDA-Public Use
  Company Number: US-ASTELLAS-2016US048933

PATIENT
  Age: 91 Year
  Sex: Male

DRUGS (1)
  1. XTANDI [Suspect]
     Active Substance: ENZALUTAMIDE
     Indication: PRODUCT USED FOR UNKNOWN INDICATION
     Route: 048
     Dates: start: 20160622, end: 201607

REACTIONS (5)
  - Dysphagia [Unknown]
  - Drug ineffective [Unknown]
  - Underdose [Unknown]
  - Product size issue [Unknown]
  - Death [Fatal]

NARRATIVE: CASE EVENT DATE: 201612
